FAERS Safety Report 13879067 (Version 3)
Quarter: 2018Q4

REPORT INFORMATION
  Report Type: Report from Study
  Country: US (occurrence: US)
  Receive Date: 20170817
  Receipt Date: 20181112
  Transmission Date: 20190204
  Serious: Yes (Hospitalization)
  Sender: FDA-Public Use
  Company Number: US-ACTELION-A-NJ2017-158250

PATIENT
  Age: 79 Year
  Sex: Female
  Weight: 102.4 kg

DRUGS (2)
  1. OPSUMIT [Suspect]
     Active Substance: MACITENTAN
     Indication: PULMONARY ARTERIAL HYPERTENSION
     Dosage: 10 MG, QD
     Route: 048
  2. ADCIRCA [Concomitant]
     Active Substance: TADALAFIL

REACTIONS (8)
  - Dyspnoea [Unknown]
  - Transfusion [Unknown]
  - Myocardial infarction [Unknown]
  - Stent placement [Unknown]
  - Asthenia [Unknown]
  - Dysstasia [Unknown]
  - Feeling cold [Unknown]
  - Internal haemorrhage [Unknown]
